FAERS Safety Report 17848391 (Version 1)
Quarter: 2020Q2

REPORT INFORMATION
  Report Type: Spontaneous
  Country: US (occurrence: US)
  Receive Date: 20200602
  Receipt Date: 20200602
  Transmission Date: 20200714
  Serious: Yes (Other)
  Sender: FDA-Public Use
  Company Number: US-SPECGX-T202000985

PATIENT
  Sex: Male
  Weight: 73 kg

DRUGS (4)
  1. GABAPENTIN. [Concomitant]
     Active Substance: GABAPENTIN
     Indication: PAIN IN EXTREMITY
     Dosage: 800 MILLIGRAM, QD
     Route: 065
  2. FENTANYL TRANSDERMAL SYSTEM [Suspect]
     Active Substance: FENTANYL
     Dosage: UNK, 1 PATCH EVERY 3 DAYS
     Route: 062
     Dates: start: 202005
  3. FENTANYL TRANSDERMAL SYSTEM [Suspect]
     Active Substance: FENTANYL
     Indication: PAIN IN EXTREMITY
     Dosage: UNK, 1 PATCH EVERY 3 DAYS
     Route: 062
     Dates: start: 2019
  4. CYMBALTA [Concomitant]
     Active Substance: DULOXETINE HYDROCHLORIDE
     Indication: PAIN IN EXTREMITY
     Dosage: 60 MILLIGRAM, QD
     Route: 065

REACTIONS (3)
  - Spinal disorder [Unknown]
  - Therapeutic response shortened [Unknown]
  - Spinal operation [Unknown]
